FAERS Safety Report 5759867-7 (Version None)
Quarter: 2008Q2

REPORT INFORMATION
  Report Type: 
  Country: None (occurrence: None)
  Receive Date: 20080605
  Receipt Date: 20080529
  Transmission Date: 20081010
  Serious: Yes (Other)
  Sender: FDA-Public Use
  Company Number: PHBS2007BR14533

PATIENT
  Age: 46 Year
  Sex: Female

DRUGS (2)
  1. EXFORGE [Suspect]
     Indication: HYPERTENSION
     Dosage: 1 TAB OF EACH ACTIVE DAILY
     Route: 048
     Dates: start: 20050101
  2. METFORMIN HCL [Concomitant]
     Indication: TYPE 2 DIABETES MELLITUS

REACTIONS (5)
  - COUGH [None]
  - HYSTERECTOMY [None]
  - SALPINGO-OOPHORECTOMY [None]
  - THROAT IRRITATION [None]
  - UTERINE CANCER [None]
